FAERS Safety Report 5051142-1 (Version None)
Quarter: 2006Q3

REPORT INFORMATION
  Report Type: 
  Country: None (occurrence: None)
  Receive Date: 20060714
  Receipt Date: 20040531
  Transmission Date: 20061208
  Serious: Yes (Other)
  Sender: FDA-Public Use
  Company Number: ES-AMGEN-US079787

PATIENT
  Sex: Female

DRUGS (5)
  1. ENBREL [Suspect]
     Indication: RHEUMATOID ARTHRITIS
     Route: 058
     Dates: start: 20040121, end: 20040308
  2. ACECLOFENAC [Concomitant]
     Route: 048
  3. ISONIAZID [Concomitant]
     Route: 048
  4. URBASON [Concomitant]
     Dates: start: 19950101
  5. OMEPRAZOLE [Concomitant]

REACTIONS (4)
  - ERYTHEMA [None]
  - LARYNGOSPASM [None]
  - OEDEMA [None]
  - PRURITUS [None]
